FAERS Safety Report 11788972 (Version 1)
Quarter: 2015Q4

REPORT INFORMATION
  Report Type: Spontaneous
  Country: PL (occurrence: PL)
  Receive Date: 20151201
  Receipt Date: 20151201
  Transmission Date: 20160305
  Serious: Yes (Other)
  Sender: FDA-Public Use
  Company Number: PHHY2015PL154561

PATIENT
  Age: 6 Year
  Sex: Male

DRUGS (5)
  1. ERWINASE [Suspect]
     Active Substance: ASPARAGINASE ERWINIA CHRYSANTHEMI
     Indication: PRODUCT USED FOR UNKNOWN INDICATION
     Dosage: DOSE 5
     Route: 065
  2. NELARABINE [Suspect]
     Active Substance: NELARABINE
     Indication: T-CELL TYPE ACUTE LEUKAEMIA
     Dosage: 650 MG/M2, QD (DAILY FOR 5 DAYS)
     Route: 065
     Dates: start: 20120807, end: 20120811
  3. MTX [Concomitant]
     Active Substance: METHOTREXATE SODIUM
     Indication: PRODUCT USED FOR UNKNOWN INDICATION
     Dosage: 12 MG, UNK
     Route: 037
  4. ARA-C [Concomitant]
     Active Substance: CYTARABINE
     Indication: PRODUCT USED FOR UNKNOWN INDICATION
     Dosage: 30 MG, UNK
     Route: 037
  5. PREDNISONE. [Concomitant]
     Active Substance: PREDNISONE
     Indication: PRODUCT USED FOR UNKNOWN INDICATION
     Dosage: 10 MG, UNK
     Route: 037

REACTIONS (11)
  - Stomatitis [Unknown]
  - Viraemia [Unknown]
  - Sepsis [Unknown]
  - Urticaria [Unknown]
  - Respiratory tract infection [Unknown]
  - Bone marrow failure [Unknown]
  - Graft versus host disease [Unknown]
  - Febrile neutropenia [Unknown]
  - Hyperbilirubinaemia [Unknown]
  - Cystitis haemorrhagic [Unknown]
  - Cytomegalovirus infection [Unknown]
